FAERS Safety Report 5810660-6 (Version None)
Quarter: 2008Q3

REPORT INFORMATION
  Report Type: 
  Country: None (occurrence: None)
  Receive Date: 20080715
  Receipt Date: 20080430
  Transmission Date: 20090109
  Serious: No
  Sender: FDA-Public Use
  Company Number: US-BOEHRINGER INGELHEIM GMBH, GERMANY-2008-BP-06823BP

PATIENT
  Age: 77 Year
  Sex: Female

DRUGS (5)
  1. SPIRIVA [Suspect]
     Indication: CHRONIC OBSTRUCTIVE PULMONARY DISEASE
     Route: 055
     Dates: start: 20071101
  2. ADVAIR DISKUS 100/50 [Suspect]
     Indication: CHRONIC OBSTRUCTIVE PULMONARY DISEASE
     Dates: start: 20080427
  3. OXYGEN [Concomitant]
     Indication: CHRONIC OBSTRUCTIVE PULMONARY DISEASE
     Route: 045
     Dates: start: 20050101
  4. ALBUTEROL [Concomitant]
  5. PREDNISONE TAB [Concomitant]
     Indication: RED BLOOD CELL SEDIMENTATION RATE INCREASED
     Dates: start: 20080428

REACTIONS (3)
  - APHONIA [None]
  - MALAISE [None]
  - OROPHARYNGEAL PAIN [None]
